FAERS Safety Report 9340104 (Version 1)
Quarter: 2013Q2

REPORT INFORMATION
  Report Type: Spontaneous
  Country: US (occurrence: None)
  Receive Date: 20130607
  Receipt Date: 20130607
  Transmission Date: 20140414
  Serious: Yes (Hospitalization)
  Sender: FDA-Public Use
  Company Number: None

PATIENT
  Age: 67 Year
  Sex: Male
  Weight: 93.5 kg

DRUGS (2)
  1. PREDNISONE [Suspect]
     Indication: POLYMYOSITIS
     Dosage: 60 MG EVERY DAY PO
     Route: 048
     Dates: start: 20130318, end: 20130323
  2. HEPARIN [Suspect]
     Indication: THROMBOSIS PROPHYLAXIS
     Dates: start: 20130316, end: 20130323

REACTIONS (2)
  - Haematochezia [None]
  - Gastric haemorrhage [None]
